FAERS Safety Report 9388025 (Version 2)
Quarter: 2013Q3

REPORT INFORMATION
  Report Type: Spontaneous
  Country: US (occurrence: None)
  Receive Date: 20130701
  Receipt Date: 20130911
  Transmission Date: 20140515
  Serious: Yes (Disabling, Other)
  Sender: FDA-Public Use
  Company Number: ACO_36999_2013

PATIENT
  Age: 45 Year
  Sex: Female

DRUGS (38)
  1. AMPYRA (DALFAMPRIDINE) TABLET, 10MG [Suspect]
     Dates: start: 20121130, end: 20130606
  2. VENTOLIN HFA (SALBUTAMOL SULFATE) [Concomitant]
  3. VITAMIN C(ASCORBIC ACID) TABLET [Concomitant]
  4. ECOTRIN(ACETYLSALICYLIC ACID) [Concomitant]
  5. BUMEX(BUMETANIDE) [Concomitant]
  6. CALCIUM CITRATE WITH VITAMIN D3(CALCIUM CITRATE, COLECALCIFEROL) [Concomitant]
  7. CATAPRESS(CLONIDINE HYDROCHLORIDE) [Concomitant]
  8. VITAMIN B12(CYANOCOBALAMIN)LOZENGE (TROCHE AND CANDY TOO) [Concomitant]
  9. DESOWEN(DESONIDE) LOTION (EXCEPT LOTION FOR EYE) [Concomitant]
  10. DIMETHYL FUMARATE (DIMETHYL FUMARATE) [Concomitant]
  11. COLACE [Concomitant]
  12. CYMBALTA(DULOXETINE HYDROCHLORIDE) [Concomitant]
  13. DRISDOL(ERGOCALCIFEROL) [Concomitant]
  14. FLONASE(FLUTICASONE PROPIONATE) [Concomitant]
  15. FOLVITE(FOLIC ACID) [Concomitant]
  16. NEURONTIN(GABAPENTIN) [Concomitant]
  17. LORTAB(HYDROCODONE BITARATE, PARACETMAOL, PROMETHAZINE HYDROCHLORIDE) [Concomitant]
  18. ADVIL(IBUPROFEN) [Concomitant]
  19. MOTRIN(IBUPROFEN) [Concomitant]
  20. BETASERON(INTERFERON BETA-1B) [Concomitant]
  21. ATROVENT(IPRATROPIM BROMIDE) [Concomitant]
  22. NIZORAL(KETOCONAZOLE)SHAMPOO [Concomitant]
  23. CHRONULAC(LACTULOSE)SOLUTION (EXCEPT SYRUP) [Concomitant]
  24. SYNTHROID(LEVOTHYROXINE SODIUM) [Concomitant]
  25. PRINIVIL(LISINOPRIL DIHYDRATE) [Concomitant]
  26. ATIVAN(LORAZEPAM) [Concomitant]
  27. MELATONIN(MELATONIN) [Concomitant]
  28. ALL OTHER THERAPEUTIC PRODUCTS CREAM [Concomitant]
  29. LOPRESSOR(METOPROLOL TARTRATE) [Concomitant]
  30. SINGULAIR [Concomitant]
  31. MULTIVAMIN(VITAMIN NOS) [Concomitant]
  32. NIACIN(NICOTINIC ACID) [Concomitant]
  33. MACRODANTIN(NITROFURANTOIN) [Concomitant]
  34. MIRALAX(MACROGOL) [Concomitant]
  35. MIRAPEX(PRAMIPEXOLE DIHYDROCHLORIDE) [Concomitant]
  36. ZOCOR(SIMVASTATIN) [Concomitant]
  37. ZINCATE(SINC SULFATE) [Concomitant]
  38. BACLOFEN(BACLOFEN) [Concomitant]

REACTIONS (28)
  - Renal impairment [None]
  - Kidney infection [None]
  - Swelling face [None]
  - Fibromyalgia [None]
  - Dyspnoea [None]
  - Oedema peripheral [None]
  - Bedridden [None]
  - Sleep apnoea syndrome [None]
  - Hypothyroidism [None]
  - Neuralgia [None]
  - Peroneal nerve palsy [None]
  - Hypertension [None]
  - Nephrolithiasis [None]
  - Cushingoid [None]
  - Obesity [None]
  - Depression [None]
  - Exostosis [None]
  - Mobility decreased [None]
  - Abdominal pain upper [None]
  - Urinary hesitation [None]
  - Fatigue [None]
  - Dysphagia [None]
  - Speech disorder [None]
  - Restless legs syndrome [None]
  - Gastrooesophageal reflux disease [None]
  - Hyperlipidaemia [None]
  - Herpes zoster [None]
  - Asthenia [None]
